FAERS Safety Report 15099117 (Version 1)
Quarter: 2018Q3

REPORT INFORMATION
  Report Type: Report from Study
  Country: US (occurrence: US)
  Receive Date: 20180702
  Receipt Date: 20180702
  Transmission Date: 20181010
  Serious: No
  Sender: FDA-Public Use
  Company Number: PHEH2018US027106

PATIENT
  Sex: Female

DRUGS (1)
  1. ENTRESTO [Suspect]
     Active Substance: SACUBITRIL\VALSARTAN
     Indication: PRODUCT USED FOR UNKNOWN INDICATION
     Dosage: 0.5 DF(SACUBITRIL 24 MG/ VALSARTAN 26 MG) , BID (HALF IN THE MORNING AND HALF AT NIGHT)
     Route: 048

REACTIONS (3)
  - Prescribed underdose [Unknown]
  - Drug prescribing error [Unknown]
  - Wrong technique in product usage process [Unknown]
